FAERS Safety Report 4741532-6 (Version None)
Quarter: 2005Q3

REPORT INFORMATION
  Report Type: 
  Country: None (occurrence: None)
  Receive Date: 20050808
  Receipt Date: 20050727
  Transmission Date: 20060218
  Serious: Yes (Hospitalization, Other)
  Sender: FDA-Public Use
  Company Number: PHBS2005JP09369

PATIENT
  Age: 20 Year
  Sex: Female
  Weight: 67 kg

DRUGS (15)
  1. NEORAL [Suspect]
     Indication: SYSTEMIC LUPUS ERYTHEMATOSUS
     Dosage: SEE IMAGE, ORAL
     Route: 048
     Dates: start: 20040101, end: 20050301
  2. NEORAL [Suspect]
     Indication: SYSTEMIC LUPUS ERYTHEMATOSUS
     Dosage: SEE IMAGE, ORAL
     Route: 048
     Dates: start: 20050302, end: 20050309
  3. NEORAL [Suspect]
     Indication: SYSTEMIC LUPUS ERYTHEMATOSUS
     Dosage: SEE IMAGE, ORAL
     Route: 048
     Dates: start: 20050310, end: 20050323
  4. NEORAL [Suspect]
     Indication: SYSTEMIC LUPUS ERYTHEMATOSUS
     Dosage: SEE IMAGE, ORAL
     Route: 048
     Dates: start: 20050324, end: 20050404
  5. NEORAL [Suspect]
     Indication: SYSTEMIC LUPUS ERYTHEMATOSUS
     Dosage: SEE IMAGE, ORAL
     Route: 048
     Dates: start: 20050408, end: 20050520
  6. RIFADIN [Suspect]
     Indication: TUBERCULOSIS
     Dosage: 25-450 MG/D, ORAL
     Route: 048
     Dates: start: 20040101, end: 20050228
  7. PREDNISOLONE [Concomitant]
  8. SOL-MELCORT            (METHYLPREDNISOLONE SODIUM SUCCINATE) [Concomitant]
  9. ISONIAZID [Concomitant]
  10. EBUTOL (ETHAMBUTOL) [Concomitant]
  11. PYRAZINAMIDE [Concomitant]
  12. ALUMINO-NIPPAS CALCIUM             (AMINOSALICYLATE CALCIUM ALUMINIUM) [Concomitant]
  13. LEVOFLOXACIN [Concomitant]
  14. BACTRIM [Concomitant]
  15. BONALON        (ALENDRONIC ACID) [Concomitant]

REACTIONS (8)
  - CONDITION AGGRAVATED [None]
  - DRUG INTERACTION [None]
  - DRUG LEVEL DECREASED [None]
  - INTERSTITIAL LUNG DISEASE [None]
  - PERICARDITIS [None]
  - PULMONARY TUBERCULOSIS [None]
  - SYSTEMIC LUPUS ERYTHEMATOSUS [None]
  - THROMBOCYTOPENIA [None]
